FAERS Safety Report 11440987 (Version 1)
Quarter: 2015Q3

REPORT INFORMATION
  Report Type: Spontaneous
  Country: US (occurrence: US)
  Receive Date: 20150821
  Receipt Date: 20150821
  Transmission Date: 20151125
  Serious: No
  Sender: FDA-Public Use
  Company Number: US-ELI_LILLY_AND_COMPANY-US200712002637

PATIENT
  Sex: Male

DRUGS (7)
  1. LOPID [Concomitant]
     Active Substance: GEMFIBROZIL
  2. CYMBALTA [Suspect]
     Active Substance: DULOXETINE HYDROCHLORIDE
     Indication: DEPRESSION
     Dosage: UNK, DAILY (1/D)
     Dates: start: 2007
  3. COZAAR [Concomitant]
     Active Substance: LOSARTAN POTASSIUM
  4. PROVENTIL                               /USA/ [Concomitant]
  5. LAMICTAL [Concomitant]
     Active Substance: LAMOTRIGINE
  6. MIRAPEX [Concomitant]
     Active Substance: PRAMIPEXOLE DIHYDROCHLORIDE
  7. CALAN [Concomitant]
     Active Substance: VERAPAMIL HYDROCHLORIDE

REACTIONS (1)
  - Benign prostatic hyperplasia [Not Recovered/Not Resolved]

NARRATIVE: CASE EVENT DATE: 2007
